FAERS Safety Report 5860564-8 (Version None)
Quarter: 2008Q3

REPORT INFORMATION
  Report Type: 
  Country: None (occurrence: None)
  Receive Date: 20080827
  Receipt Date: 20070911
  Transmission Date: 20090109
  Serious: No
  Sender: FDA-Public Use
  Company Number: US-ABBOTT-07P-163-0416595-00

PATIENT
  Sex: Female

DRUGS (6)
  1. COATED PDS [Suspect]
     Indication: BLOOD CHOLESTEROL INCREASED
     Route: 048
     Dates: start: 20070821
  2. ACETYLSALICYLIC ACID SRT [Concomitant]
     Indication: PROPHYLAXIS
     Route: 048
  3. ACETYLSALICYLIC ACID SRT [Concomitant]
     Indication: ADVERSE DRUG REACTION
  4. EZETIMIBE [Concomitant]
     Indication: BLOOD CHOLESTEROL INCREASED
     Route: 048
  5. LOTRIL [Concomitant]
     Indication: BLOOD CHOLESTEROL INCREASED
     Route: 048
  6. OMEGA-3 MARINE TRIGLYCERIDES [Concomitant]
     Indication: BLOOD CHOLESTEROL INCREASED
     Route: 048

REACTIONS (1)
  - FLUSHING [None]
